FAERS Safety Report 16256982 (Version 6)
Quarter: 2020Q1

REPORT INFORMATION
  Report Type: Report from Study
  Country: CH (occurrence: CH)
  Receive Date: 20190430
  Receipt Date: 20200326
  Transmission Date: 20200409
  Serious: Yes (Death, Hospitalization, Other)
  Sender: FDA-Public Use
  Company Number: CH-BRISTOL-MYERS SQUIBB COMPANY-BMS-2019-011402

PATIENT
  Age: 57 Year
  Sex: Male

DRUGS (20)
  1. NIVOLUMAB [Suspect]
     Active Substance: NIVOLUMAB
     Indication: LUNG NEOPLASM MALIGNANT
     Route: 065
  2. TRAMADOL RETARD [Concomitant]
     Active Substance: TRAMADOL
     Indication: AUTOIMMUNE DISORDER
     Dosage: 100 MG, QD
     Route: 048
     Dates: start: 20180410, end: 20180416
  3. NIVOLUMAB [Suspect]
     Active Substance: NIVOLUMAB
     Indication: MALIGNANT MELANOMA
     Dosage: 1 DOSAGE FORM, Q2WK
     Route: 042
     Dates: start: 20180212, end: 201901
  4. LESCOL [Concomitant]
     Active Substance: FLUVASTATIN SODIUM
     Indication: GYNAECOMASTIA
     Dosage: 80 MG, QD
     Route: 048
     Dates: start: 1900
  5. PANTOPRAZOL [PANTOPRAZOLE] [Concomitant]
     Active Substance: PANTOPRAZOLE
     Indication: AUTOIMMUNE DISORDER
     Dosage: 80 MG, QD
     Route: 048
     Dates: start: 20180410
  6. AVAMYS [Concomitant]
     Active Substance: FLUTICASONE FUROATE
     Indication: SINUSITIS
     Dosage: 55 MICROGRAM, DAILY
     Route: 045
     Dates: start: 20190327, end: 20200113
  7. MESALAZINE [Concomitant]
     Active Substance: MESALAMINE
     Indication: AUTOIMMUNE DISORDER
     Dosage: 500 MILLIGRAM, QD
     Route: 048
     Dates: start: 1900, end: 20200113
  8. SPIRICORT [Concomitant]
     Active Substance: PREDNISOLONE
     Indication: PRODUCT USED FOR UNKNOWN INDICATION
     Dosage: 50 MILLIGRAM, DAILY
     Route: 048
     Dates: start: 20190110, end: 20190321
  9. PREDNISOLON [PREDNISOLONE] [Concomitant]
     Active Substance: PREDNISOLONE
     Indication: PRODUCT USED FOR UNKNOWN INDICATION
     Dosage: 20 MILLIGRAM, QD
     Route: 048
     Dates: start: 20190507, end: 20190528
  10. TOREM [TORASEMIDE] [Concomitant]
     Active Substance: TORSEMIDE
     Indication: AUTOIMMUNE DISORDER
     Dosage: 10 MILLIGRAM, QD
     Route: 048
     Dates: start: 20160824, end: 20180808
  11. SPIRICORT [Concomitant]
     Active Substance: PREDNISOLONE
     Indication: AUTOIMMUNE DISORDER
     Dosage: 20 MG, QD
     Route: 048
     Dates: start: 20180410, end: 20180416
  12. SPIRICORT [Concomitant]
     Active Substance: PREDNISOLONE
     Indication: PRODUCT USED FOR UNKNOWN INDICATION
     Dosage: 7.5 MG, QD
     Route: 048
     Dates: start: 20180502, end: 20180529
  13. SPIRICORT [Concomitant]
     Active Substance: PREDNISOLONE
     Indication: PRODUCT USED FOR UNKNOWN INDICATION
     Dosage: 65 MG, QD
     Route: 048
     Dates: start: 20190107, end: 20190115
  14. BACTRIM [Concomitant]
     Active Substance: SULFAMETHOXAZOLE\TRIMETHOPRIM
     Indication: PNEUMONIA
     Dosage: 800 MILLIGRAM, DAILY
     Route: 048
     Dates: start: 20190425, end: 20200113
  15. PRIMPERAN [Concomitant]
     Active Substance: METOCLOPRAMIDE HYDROCHLORIDE
     Indication: NAUSEA
     Dosage: 30 MILLIGRAM, QD
     Route: 048
     Dates: start: 20200113
  16. METFORMIN [Concomitant]
     Active Substance: METFORMIN HYDROCHLORIDE
     Indication: DIABETES MELLITUS
     Dosage: 1000 MG, QD
     Route: 048
     Dates: end: 20180808
  17. SPIRICORT [Concomitant]
     Active Substance: PREDNISOLONE
     Indication: PRODUCT USED FOR UNKNOWN INDICATION
     Dosage: 15 MG, QD
     Route: 048
     Dates: start: 20180416, end: 20180423
  18. SPIRICORT [Concomitant]
     Active Substance: PREDNISOLONE
     Indication: PRODUCT USED FOR UNKNOWN INDICATION
     Dosage: 10 MG, QD
     Route: 048
     Dates: start: 20180423, end: 20180502
  19. SPIRICORT [Concomitant]
     Active Substance: PREDNISOLONE
     Indication: PRODUCT USED FOR UNKNOWN INDICATION
     Dosage: 5 MG, QD
     Route: 048
     Dates: start: 20180515, end: 20190106
  20. CALCIMAGON [CALCIUM] [Concomitant]
     Indication: MINERAL SUPPLEMENTATION
     Dosage: 500 MILLIGRAM, DAILY
     Route: 048
     Dates: start: 20190425, end: 20200113

REACTIONS (4)
  - Gastritis erosive [Recovered/Resolved]
  - Duodenitis [Recovered/Resolved]
  - Malignant neoplasm progression [Fatal]
  - Pneumonitis [Recovered/Resolved]

NARRATIVE: CASE EVENT DATE: 20180402
